FAERS Safety Report 18590301 (Version 2)
Quarter: 2021Q1

REPORT INFORMATION
  Report Type: Report from Study
  Country: AR (occurrence: AR)
  Receive Date: 20201208
  Receipt Date: 20210219
  Transmission Date: 20210419
  Serious: Yes (Death, Other)
  Sender: FDA-Public Use
  Company Number: AR-BRISTOL-MYERS SQUIBB COMPANY-BMS-2020-103112

PATIENT
  Age: 84 Year
  Sex: Female

DRUGS (1)
  1. APIXABAN [Suspect]
     Active Substance: APIXABAN
     Indication: PRODUCT USED FOR UNKNOWN INDICATION
     Dosage: 5 MILLIGRAM
     Route: 065
     Dates: start: 20181221

REACTIONS (4)
  - Cardiac disorder [Unknown]
  - Renal disorder [Unknown]
  - Death [Fatal]
  - Pneumonia [Unknown]

NARRATIVE: CASE EVENT DATE: 202011
